FAERS Safety Report 23615704 (Version 1)
Quarter: 2024Q1

REPORT INFORMATION
  Report Type: Spontaneous
  Country: JP (occurrence: JP)
  Receive Date: 20240311
  Receipt Date: 20240311
  Transmission Date: 20240409
  Serious: Yes (Other)
  Sender: FDA-Public Use
  Company Number: JP-JNJFOC-20240312790

PATIENT
  Age: 69 Year

DRUGS (9)
  1. VELCADE [Suspect]
     Active Substance: BORTEZOMIB
     Indication: Plasma cell myeloma
     Dosage: UNK
     Route: 065
     Dates: start: 201604, end: 201710
  2. DEXAMETHASONE [Suspect]
     Active Substance: DEXAMETHASONE
     Indication: Plasma cell myeloma
     Dosage: UNK
     Route: 065
     Dates: start: 201604, end: 201710
  3. DEXAMETHASONE [Suspect]
     Active Substance: DEXAMETHASONE
     Dosage: UNK
     Route: 065
     Dates: start: 201711, end: 201805
  4. DEXAMETHASONE [Suspect]
     Active Substance: DEXAMETHASONE
     Dosage: UNK
     Route: 065
     Dates: start: 2018, end: 2018
  5. DEXAMETHASONE [Suspect]
     Active Substance: DEXAMETHASONE
     Dosage: UNK
     Route: 065
     Dates: start: 201808, end: 202402
  6. Lenalidomide hydrochloride monohydrate [Concomitant]
     Indication: Plasma cell myeloma
     Dosage: UNK
     Route: 048
     Dates: start: 201604
  7. Lenalidomide hydrochloride monohydrate [Concomitant]
     Dosage: UNK
     Route: 048
     Dates: start: 2018, end: 2018
  8. Lenalidomide hydrochloride monohydrate [Concomitant]
     Dosage: UNK
     Route: 048
     Dates: start: 201808, end: 202402
  9. CARFILZOMIB [Concomitant]
     Active Substance: CARFILZOMIB
     Indication: Plasma cell myeloma
     Dosage: UNK
     Route: 065
     Dates: start: 201711, end: 201805

REACTIONS (1)
  - Plasma cell myeloma [Unknown]

NARRATIVE: CASE EVENT DATE: 20170901
